FAERS Safety Report 5307588-7 (Version None)
Quarter: 2007Q2

REPORT INFORMATION
  Report Type: 
  Country: None (occurrence: None)
  Receive Date: 20070425
  Receipt Date: 20070416
  Transmission Date: 20071010
  Serious: Yes (Other)
  Sender: FDA-Public Use
  Company Number: GB-PFIZER INC-2007030842

PATIENT
  Age: 12 Year
  Sex: Male

DRUGS (2)
  1. SERTRALINE [Suspect]
     Dosage: TEXT:UNKNOWN
  2. PAROXETINE [Suspect]
     Dosage: TEXT:UNKNOWN
     Dates: start: 20011001

REACTIONS (8)
  - ABNORMAL BEHAVIOUR [None]
  - AGGRESSION [None]
  - HALLUCINATION [None]
  - HOMICIDE [None]
  - MANIA [None]
  - PSYCHOTIC DISORDER [None]
  - REFUSAL OF TREATMENT BY RELATIVE [None]
  - RESTLESSNESS [None]
